FAERS Safety Report 7571990-3 (Version None)
Quarter: 2011Q2

REPORT INFORMATION
  Report Type: 
  Country: None (occurrence: None)
  Receive Date: 20110624
  Receipt Date: 20110617
  Transmission Date: 20111010
  Serious: Yes (Other)
  Sender: FDA-Public Use
  Company Number: US-ASTRAZENECA-2011SE36999

PATIENT

DRUGS (4)
  1. NEXIUM [Suspect]
     Route: 048
  2. ZOLPIDEM [Concomitant]
  3. ALPRAZOLAM [Concomitant]
  4. TOPIRAMATE [Concomitant]

REACTIONS (2)
  - THINKING ABNORMAL [None]
  - MULTIPLE SCLEROSIS [None]
